FAERS Safety Report 7628860-1 (Version None)
Quarter: 2011Q3

REPORT INFORMATION
  Report Type: 
  Country: None (occurrence: None)
  Receive Date: 20110722
  Receipt Date: 20110715
  Transmission Date: 20111222
  Serious: Yes (Hospitalization, Other)
  Sender: FDA-Public Use
  Company Number: US-SANOFI-AVENTIS-2011SA045790

PATIENT
  Sex: Female

DRUGS (6)
  1. LANTUS [Suspect]
     Route: 058
  2. SOLOSTAR [Suspect]
     Indication: DIABETES MELLITUS
     Dates: start: 20050101
  3. GLUCOVANCE [Suspect]
     Route: 065
     Dates: end: 20100101
  4. METFORMIN HCL [Concomitant]
     Dates: start: 20100101
  5. LANTUS [Suspect]
     Indication: DIABETES MELLITUS
     Dosage: DOSE:20 UNIT(S)
     Route: 058
  6. LANTUS [Suspect]
     Route: 058
     Dates: start: 20050101

REACTIONS (3)
  - BLOOD GLUCOSE INCREASED [None]
  - BLOOD GLUCOSE DECREASED [None]
  - GASTRIC BANDING [None]
